FAERS Safety Report 9466576 (Version 2)
Quarter: 2013Q3

REPORT INFORMATION
  Report Type: Report from Study
  Country: US (occurrence: US)
  Receive Date: 20130820
  Receipt Date: 20130905
  Transmission Date: 20140515
  Serious: No
  Sender: FDA-Public Use
  Company Number: US-ROCHE-1263704

PATIENT
  Sex: Female

DRUGS (4)
  1. LUCENTIS [Suspect]
     Indication: DIABETIC RETINAL OEDEMA
     Dosage: BOTH EYES, ABOUT ONCE A MONTH OR SO
     Route: 050
     Dates: start: 2012
  2. LUCENTIS [Suspect]
     Route: 050
     Dates: start: 20130117, end: 20130117
  3. LUCENTIS [Suspect]
     Route: 050
     Dates: start: 20130809, end: 20130809
  4. ZOFRAN [Concomitant]

REACTIONS (3)
  - Visual acuity reduced [Unknown]
  - Vision blurred [Unknown]
  - Vision blurred [Unknown]
